FAERS Safety Report 5276205-7 (Version None)
Quarter: 2007Q2

REPORT INFORMATION
  Report Type: 
  Country: None (occurrence: None)
  Receive Date: 20070326
  Receipt Date: 20070321
  Transmission Date: 20071010
  Serious: Yes (Disabling)
  Sender: FDA-Public Use
  Company Number: NO-ROXANE LABORATORIES, INC-2007-DE-01746GD

PATIENT
  Age: 69 Year
  Sex: Female

DRUGS (4)
  1. HYDROCHLOROTHIAZIDE [Suspect]
     Indication: HYPERTENSION
  2. LOSARTAN POTASSIUM [Suspect]
     Indication: HYPERTENSION
  3. METFORMIN HCL [Suspect]
     Indication: DIABETES MELLITUS NON-INSULIN-DEPENDENT
  4. GLIMEPIRIDE [Suspect]
     Indication: DIABETES MELLITUS NON-INSULIN-DEPENDENT

REACTIONS (12)
  - ABDOMINAL PAIN [None]
  - BACK PAIN [None]
  - BLINDNESS [None]
  - CARDIO-RESPIRATORY ARREST [None]
  - CEREBELLAR INFARCTION [None]
  - CEREBRAL INFARCTION [None]
  - DISSEMINATED INTRAVASCULAR COAGULATION [None]
  - DIZZINESS [None]
  - HYPOTHERMIA [None]
  - LACTIC ACIDOSIS [None]
  - MULTI-ORGAN FAILURE [None]
  - RENAL FAILURE ACUTE [None]
